FAERS Safety Report 7293397-9 (Version None)
Quarter: 2011Q1

REPORT INFORMATION
  Report Type: 
  Country: None (occurrence: None)
  Receive Date: 20110215
  Receipt Date: 20110205
  Transmission Date: 20110831
  Serious: Yes (Other)
  Sender: FDA-Public Use
  Company Number: PL-BAXTER-2011BH003140

PATIENT

DRUGS (3)
  1. CYCLOPHOSPHAMIDE [Suspect]
     Indication: CHRONIC LYMPHOCYTIC LEUKAEMIA
     Route: 042
  2. ALLOPURINOL [Concomitant]
     Indication: PROPHYLAXIS
     Route: 065
  3. CLADRIBINE [Suspect]
     Indication: CHRONIC LYMPHOCYTIC LEUKAEMIA
     Route: 042

REACTIONS (1)
  - AUTOIMMUNE THROMBOCYTOPENIA [None]
